FAERS Safety Report 24962097 (Version 2)
Quarter: 2025Q1

REPORT INFORMATION
  Report Type: Spontaneous
  Country: US (occurrence: US)
  Receive Date: 20250212
  Receipt Date: 20250312
  Transmission Date: 20250409
  Serious: No
  Sender: MYLAN
  Company Number: US-MYLANLABS-2025M1012180

PATIENT
  Age: 6 Year

DRUGS (1)
  1. EPINEPHRINE [Suspect]
     Active Substance: EPINEPHRINE
     Indication: Anaphylactic reaction

REACTIONS (3)
  - Liquid product physical issue [Unknown]
  - Suspected product contamination [Unknown]
  - Product quality issue [Unknown]

NARRATIVE: CASE EVENT DATE: 20250207
